FAERS Safety Report 9614268 (Version 1)
Quarter: 2013Q4

REPORT INFORMATION
  Report Type: Spontaneous
  Country: GB (occurrence: GB)
  Receive Date: 20131011
  Receipt Date: 20131011
  Transmission Date: 20140711
  Serious: Yes (Other)
  Sender: FDA-Public Use
  Company Number: GB-RANBAXY-2013R1-73994

PATIENT
  Age: 71 Year
  Sex: Male

DRUGS (1)
  1. CO-AMOXICLAV [Suspect]
     Indication: PRODUCT USED FOR UNKNOWN INDICATION
     Dosage: UNK
     Route: 048
     Dates: start: 20130228, end: 20130301

REACTIONS (3)
  - Decreased appetite [Recovered/Resolved]
  - Diabetes mellitus inadequate control [Recovered/Resolved]
  - Vomiting [Recovered/Resolved]
